FAERS Safety Report 25454771 (Version 2)
Quarter: 2025Q3

REPORT INFORMATION
  Report Type: Report from Study
  Country: US (occurrence: US)
  Receive Date: 20250619
  Receipt Date: 20250825
  Transmission Date: 20251021
  Serious: Yes (Other)
  Sender: NOVARTIS
  Company Number: US-002147023-NVSC2025US097438

PATIENT
  Sex: Female
  Weight: 68.04 kg

DRUGS (1)
  1. KESIMPTA [Suspect]
     Active Substance: OFATUMUMAB
     Indication: Multiple sclerosis
     Dosage: UNK, QMO
     Route: 042

REACTIONS (5)
  - Facial paralysis [Unknown]
  - Fatigue [Unknown]
  - Peroneal nerve palsy [Unknown]
  - Dysarthria [Unknown]
  - Muscle spasms [Unknown]
